FAERS Safety Report 9468138 (Version 6)
Quarter: 2013Q4

REPORT INFORMATION
  Report Type: Spontaneous
  Country: FR (occurrence: FR)
  Receive Date: 20130821
  Receipt Date: 20131220
  Transmission Date: 20140711
  Serious: Yes (Death, Hospitalization, Other)
  Sender: FDA-Public Use
  Company Number: FR-SANOFI-AVENTIS-2013SA083208

PATIENT
  Age: 65 Year
  Sex: Male
  Weight: 53 kg

DRUGS (5)
  1. ELIGARD [Suspect]
     Indication: PRODUCT USED FOR UNKNOWN INDICATION
     Route: 058
     Dates: start: 20130326, end: 20130326
  2. ZALDIAR [Concomitant]
     Indication: PAIN
     Route: 048
     Dates: start: 20130405, end: 20130420
  3. DICLOFENAC SODIUM [Concomitant]
     Indication: PAIN IN EXTREMITY
     Dates: start: 20130326, end: 201304
  4. NPLATE [Concomitant]
     Indication: IMMUNE THROMBOCYTOPENIC PURPURA
     Dates: start: 20130719, end: 20130804
  5. CORTICOSTEROIDS [Concomitant]
     Indication: IMMUNE THROMBOCYTOPENIC PURPURA
     Route: 042
     Dates: start: 20130712, end: 20130908

REACTIONS (3)
  - Thrombocytopenic purpura [Fatal]
  - Sarcoma [Fatal]
  - Gastrointestinal haemorrhage [Recovered/Resolved]
